FAERS Safety Report 15547127 (Version 2)
Quarter: 2022Q1

REPORT INFORMATION
  Report Type: Spontaneous
  Country: FR (occurrence: FR)
  Receive Date: 20181024
  Receipt Date: 20220310
  Transmission Date: 20220423
  Serious: Yes (Hospitalization)
  Sender: FDA-Public Use
  Company Number: None

PATIENT
  Age: 24 Year
  Sex: Female
  Weight: 55 kg

DRUGS (10)
  1. FLUOXETINE [Suspect]
     Active Substance: FLUOXETINE HYDROCHLORIDE
     Indication: Mental disorder
     Dosage: 120 MG, QD
     Route: 048
     Dates: start: 20180822, end: 20180914
  2. MOVICOL [Suspect]
     Active Substance: POLYETHYLENE GLYCOL 3350\POTASSIUM CHLORIDE\SODIUM BICARBONATE\SODIUM CHLORIDE
     Indication: Constipation
     Dosage: 1 DF, QD
     Route: 048
     Dates: start: 20180822, end: 20180914
  3. LORAZEPAM [Suspect]
     Active Substance: LORAZEPAM
     Indication: Mental disorder
     Dosage: 75 MG, QD
     Route: 048
     Dates: start: 20180907, end: 20180914
  4. ZUCLOPENTHIXOL [Suspect]
     Active Substance: ZUCLOPENTHIXOL
     Indication: Mental disorder
     Dosage: 25 MG, QD
     Route: 048
     Dates: start: 20180822, end: 20180911
  5. TRIMEPRAZINE [Suspect]
     Active Substance: TRIMEPRAZINE
     Indication: Mental disorder
     Dosage: 30 DRP, QD ( SOLUTION BUVABLE EN GOUTTES, (1/12 MILLILITRE))
     Route: 048
     Dates: start: 20180822, end: 20180822
  6. TROPATEPINE HYDROCHLORIDE [Suspect]
     Active Substance: TROPATEPINE HYDROCHLORIDE
     Indication: Mental disorder
     Dosage: 10 MG, QD (COMPRIM?)
     Route: 048
     Dates: start: 20180822, end: 20180914
  7. LOXAPINE [Suspect]
     Active Substance: LOXAPINE
     Indication: Mental disorder
     Dosage: 4 MG, QD (SOLUTION BUVABLE)
     Route: 048
     Dates: start: 20180822, end: 20180909
  8. VALIUM [Suspect]
     Active Substance: DIAZEPAM
     Indication: Mental disorder
     Dosage: 20 MG, QD
     Route: 048
     Dates: start: 20180905, end: 20180914
  9. ETHINYL ESTRADIOL\LEVONORGESTREL [Suspect]
     Active Substance: ETHINYL ESTRADIOL\LEVONORGESTREL
     Indication: Contraception
     Dosage: 21 DOSAGE FORM, QMO
     Route: 048
     Dates: start: 20180829, end: 20180913
  10. FUCIDINE [Concomitant]
     Indication: Skin infection
     Dosage: 1 DOSAGE FORM, QD
     Route: 003
     Dates: start: 20180905, end: 20180911

REACTIONS (1)
  - Hepatitis acute [Recovered/Resolved]

NARRATIVE: CASE EVENT DATE: 20180909
